FAERS Safety Report 20034146 (Version 2)
Quarter: 2021Q4

REPORT INFORMATION
  Report Type: Spontaneous
  Country: JP (occurrence: JP)
  Receive Date: 20211104
  Receipt Date: 20211110
  Transmission Date: 20220303
  Serious: Yes (Life-Threatening, Other)
  Sender: FDA-Public Use
  Company Number: JP-PFIZER INC-202101448641

PATIENT
  Age: 2 Year
  Sex: Male

DRUGS (6)
  1. MITOXANTRONE HYDROCHLORIDE [Suspect]
     Active Substance: MITOXANTRONE HYDROCHLORIDE
     Indication: Acute myeloid leukaemia
     Dosage: 5 MG/M2, CYCLIC X 5 DAYS
  2. METHOTREXATE SODIUM [Suspect]
     Active Substance: METHOTREXATE SODIUM
     Indication: Acute myeloid leukaemia
     Dosage: 10 MG, SINGLE
     Route: 037
  3. HYDROCORTISONE [Suspect]
     Active Substance: HYDROCORTISONE
     Indication: Acute myeloid leukaemia
     Dosage: 20 MG, SINGLE INJECTION
     Route: 037
  4. ETOPOSIDE [Suspect]
     Active Substance: ETOPOSIDE
     Indication: Acute myeloid leukaemia
     Dosage: 150 MG/M2, DAILY X 5 DAYS
  5. CYTARABINE [Suspect]
     Active Substance: CYTARABINE
     Indication: Acute myeloid leukaemia
     Dosage: 200 MG/M2, DAILY X 7 DAYS
  6. CYTARABINE [Suspect]
     Active Substance: CYTARABINE
     Dosage: 25 MG, SINGLE
     Route: 037

REACTIONS (11)
  - Gastroenteritis adenovirus [Recovered/Resolved]
  - Neutropenia [Recovered/Resolved]
  - Myelosuppression [Recovered/Resolved]
  - Tachycardia [Recovering/Resolving]
  - Hypovolaemic shock [Recovered/Resolved]
  - Diarrhoea [Recovered/Resolved]
  - Metabolic acidosis [Recovering/Resolving]
  - Hypernatraemia [Recovering/Resolving]
  - Gastrointestinal mucosal disorder [Recovered/Resolved]
  - Weight decreased [Recovering/Resolving]
  - Vomiting [Recovering/Resolving]
